FAERS Safety Report 8198308-X (Version None)
Quarter: 2012Q1

REPORT INFORMATION
  Report Type: 
  Country: None (occurrence: None)
  Receive Date: 20120309
  Receipt Date: 20120307
  Transmission Date: 20120608
  Serious: Yes (Death)
  Sender: FDA-Public Use
  Company Number: US-MERCK-1112USA01772

PATIENT
  Age: 60 Year
  Sex: Male

DRUGS (4)
  1. ISENTRESS [Suspect]
     Indication: HIV INFECTION
     Route: 048
  2. NORVIR [Concomitant]
     Route: 065
  3. TRUVADA [Concomitant]
     Route: 065
  4. PREZISTA [Concomitant]
     Route: 065

REACTIONS (1)
  - DEATH [None]
